FAERS Safety Report 6573491-8 (Version None)
Quarter: 2010Q1

REPORT INFORMATION
  Report Type: 
  Country: None (occurrence: None)
  Receive Date: 20100204
  Receipt Date: 20100204
  Transmission Date: 20100710
  Serious: Yes (Hospitalization)
  Sender: FDA-Public Use
  Company Number: None

PATIENT
  Sex: Female
  Weight: 59.5 kg

DRUGS (2)
  1. BUPROPION HCL [Suspect]
     Indication: DEPRESSION
     Dosage: 450 MGS XL 1X AM
     Dates: start: 20091118, end: 20091204
  2. CITALOPRAM HYDROBROMIDE 40 MGS [Suspect]
     Indication: CHRONIC FATIGUE SYNDROME
     Dosage: 40 MGS 1X PM
     Dates: start: 20091108, end: 20091204

REACTIONS (12)
  - ATRIAL FIBRILLATION [None]
  - CEREBROVASCULAR ACCIDENT [None]
  - CONFUSIONAL STATE [None]
  - CONVULSION [None]
  - HYPERTENSION [None]
  - HYPOAESTHESIA [None]
  - LOSS OF CONSCIOUSNESS [None]
  - NEURALGIA [None]
  - PAIN [None]
  - PARAESTHESIA [None]
  - PARALYSIS [None]
  - SPEECH DISORDER [None]
